FAERS Safety Report 5226301-5 (Version None)
Quarter: 2007Q1

REPORT INFORMATION
  Report Type: 
  Country: None (occurrence: None)
  Receive Date: 20070201
  Receipt Date: 20070122
  Transmission Date: 20070707
  Serious: Yes (Hospitalization)
  Sender: FDA-Public Use
  Company Number: 2007UW01620

PATIENT
  Age: 753 Month
  Sex: Female

DRUGS (11)
  1. SEROQUEL [Suspect]
     Indication: BIPOLAR I DISORDER
     Route: 048
     Dates: start: 20070101
  2. SEROQUEL [Suspect]
     Route: 048
  3. LAMOTRIGINE [Concomitant]
  4. NOZINAN [Concomitant]
  5. LORAZEPAM [Concomitant]
  6. PANTOLOC [Concomitant]
  7. SYNTHROID [Concomitant]
  8. METFORMIN HCL [Concomitant]
  9. CELEBREX [Concomitant]
  10. THIAZIDE [Concomitant]
  11. PAXIL CR [Concomitant]

REACTIONS (1)
  - VISION BLURRED [None]
